FAERS Safety Report 8237799-2 (Version None)
Quarter: 2012Q1

REPORT INFORMATION
  Report Type: 
  Country: None (occurrence: None)
  Receive Date: 20120326
  Receipt Date: 20120314
  Transmission Date: 20120608
  Serious: Yes (Other)
  Sender: FDA-Public Use
  Company Number: US-1187815

PATIENT
  Age: 68 Year
  Sex: Male
  Weight: 117.9352 kg

DRUGS (3)
  1. CEFUROXIME [Concomitant]
  2. BSS [Suspect]
     Indication: INTRAOCULAR LENS IMPLANT
     Dosage: (INTRAOCULAR)
     Route: 031
     Dates: start: 20110808, end: 20110808
  3. EPINEPHRINE [Concomitant]

REACTIONS (4)
  - EYE PAIN [None]
  - EYE INFECTION [None]
  - ULCERATIVE KERATITIS [None]
  - MEDICATION ERROR [None]
